FAERS Safety Report 16760336 (Version 1)
Quarter: 2019Q3

REPORT INFORMATION
  Report Type: Report from Study
  Country: CA (occurrence: CA)
  Receive Date: 20190830
  Receipt Date: 20190830
  Transmission Date: 20191005
  Serious: Yes (Death, Other)
  Sender: FDA-Public Use
  Company Number: CA-WHANIN PHARM. CO., LTD.-2019M1060156

PATIENT
  Age: 48 Year
  Sex: Male

DRUGS (5)
  1. CLOZAPINE. [Suspect]
     Active Substance: CLOZAPINE
     Indication: PRODUCT USED FOR UNKNOWN INDICATION
     Dosage: UNK
     Dates: start: 201412
  2. CLOZAPINE. [Suspect]
     Active Substance: CLOZAPINE
     Dosage: 50 QAM
  3. OXAZEPAM. [Concomitant]
     Active Substance: OXAZEPAM
     Dosage: UNK, HS
  4. CLONAZEPAN [Concomitant]
     Active Substance: CLONAZEPAM
     Dosage: UNK UNK, HS
  5. CLOZAPINE. [Suspect]
     Active Substance: CLOZAPINE
     Dosage: 450 QHS

REACTIONS (3)
  - Cardiac arrest [Fatal]
  - Intestinal obstruction [Unknown]
  - Strangulated hernia [Unknown]

NARRATIVE: CASE EVENT DATE: 201906
